FAERS Safety Report 8890270 (Version 3)
Quarter: 2014Q2

REPORT INFORMATION
  Report Type: Spontaneous
  Country: US (occurrence: US)
  Receive Date: 20121107
  Receipt Date: 20140506
  Transmission Date: 20141212
  Serious: Yes (Hospitalization, Other)
  Sender: FDA-Public Use
  Company Number: US-BAYER-2012-115871

PATIENT
  Age: 25 Year
  Sex: Female
  Weight: 95 kg

DRUGS (5)
  1. YASMIN [Suspect]
     Dosage: UNK
     Dates: start: 20020101, end: 2008
  2. ADVIL [IBUPROFEN] [Concomitant]
     Dosage: UNK UNK, PRN
  3. AMOXICILLIN [Concomitant]
  4. PEPTO BISMOL [Concomitant]
     Dosage: AS DIRECTED
     Route: 048
  5. ZITHROMAX [Concomitant]
     Dosage: UNK
     Dates: start: 20031215

REACTIONS (13)
  - Gallbladder perforation [None]
  - Pain [None]
  - General physical health deterioration [None]
  - Anxiety [None]
  - Anhedonia [None]
  - Injury [None]
  - Pain [None]
  - Emotional distress [None]
  - Sphincter of Oddi dysfunction [None]
  - Abortion spontaneous [None]
  - Drug ineffective [None]
  - Pregnancy on oral contraceptive [None]
  - Abdominal pain [None]
